FAERS Safety Report 6186611-4 (Version None)
Quarter: 2009Q2

REPORT INFORMATION
  Report Type: 
  Country: None (occurrence: None)
  Receive Date: 20090507
  Receipt Date: 20090507
  Transmission Date: 20091009
  Serious: Yes (Other)
  Sender: FDA-Public Use
  Company Number: None

PATIENT
  Age: 94 Year
  Sex: Female
  Weight: 65.7716 kg

DRUGS (1)
  1. OXYBUTYNIN - TRANSDERMAL [Suspect]
     Indication: INCONTINENCE
     Dosage: 3.9MG/24 HR PATCH 2 X WEEK ON HIPS

REACTIONS (4)
  - ATRIAL FIBRILLATION [None]
  - ERYTHEMA [None]
  - PAIN [None]
  - SKIN IRRITATION [None]
